FAERS Safety Report 4326051-3 (Version None)
Quarter: 2004Q1

REPORT INFORMATION
  Report Type: 
  Country: None (occurrence: None)
  Receive Date: 20040323
  Receipt Date: 20040115
  Transmission Date: 20041129
  Serious: Yes (Hospitalization)
  Sender: FDA-Public Use
  Company Number: EM2003-0319

PATIENT
  Age: 42 Year
  Sex: Male

DRUGS (9)
  1. ALDESLEUKIN; CHIRON (ALDESLEUKIN; CHIRON COPORATION) INJECTION [Suspect]
     Indication: HIV INFECTION
     Dosage: 4.5 MIU, Q12H, SUBCUTAN.
     Route: 058
     Dates: start: 20010115, end: 20010120
  2. BACTRIM DS [Concomitant]
  3. ATIVAN [Concomitant]
  4. KALETRA [Concomitant]
  5. ZERIT [Concomitant]
  6. VIRAMUNE [Concomitant]
  7. ZIAGEN [Concomitant]
  8. ZOVIRAX [Concomitant]
  9. AMBIEN [Concomitant]

REACTIONS (1)
  - PANIC ATTACK [None]
